FAERS Safety Report 6288327-2 (Version None)
Quarter: 2009Q3

REPORT INFORMATION
  Report Type: 
  Country: None (occurrence: None)
  Receive Date: 20090729
  Receipt Date: 20080424
  Transmission Date: 20100115
  Serious: Yes (Hospitalization, Other)
  Sender: FDA-Public Use
  Company Number: US-ASTRAZENECA-2006UW24136

PATIENT
  Age: 41 Year
  Sex: Male

DRUGS (9)
  1. SEROQUEL [Suspect]
     Indication: MENTAL DISORDER
     Route: 048
     Dates: start: 20020101
  2. SEROQUEL [Suspect]
     Route: 048
     Dates: start: 20020211
  3. THORAZINE [Concomitant]
     Dates: start: 20050101
  4. ZYPREXA [Concomitant]
     Indication: AFFECTIVE DISORDER
     Dosage: 5 MG TO 20 MG DAILY
     Route: 048
     Dates: start: 20010220
  5. RISPERDAL [Concomitant]
     Route: 048
     Dates: start: 20020211
  6. COGENTIN [Concomitant]
     Route: 048
     Dates: start: 20020211
  7. WELLBUTRIN XL [Concomitant]
     Route: 048
     Dates: start: 20020211
  8. TRAZODONE [Concomitant]
     Indication: INSOMNIA
     Dosage: STRENGTH: 50 MG AS NECESSARY
     Route: 048
     Dates: start: 20020211
  9. ABILIFY [Concomitant]
     Route: 048
     Dates: start: 20031202

REACTIONS (4)
  - DIABETES MELLITUS [None]
  - HYPERGLYCAEMIA [None]
  - TYPE 2 DIABETES MELLITUS [None]
  - VISUAL ACUITY REDUCED [None]
